FAERS Safety Report 5304665-1 (Version None)
Quarter: 2007Q2

REPORT INFORMATION
  Report Type: 
  Country: None (occurrence: None)
  Receive Date: 20070423
  Receipt Date: 20070417
  Transmission Date: 20071010
  Serious: Yes (Hospitalization)
  Sender: FDA-Public Use
  Company Number: US-GENENTECH-238595

PATIENT
  Age: 27 Year
  Sex: Female

DRUGS (8)
  1. BEVACIZUMAB [Suspect]
     Indication: BREAST CANCER
     Dosage: 15 MG/KG, Q3W
     Route: 042
     Dates: start: 20070116, end: 20070227
  2. BEVACIZUMAB [Suspect]
     Dates: start: 20070410
  3. CYCLOPHOSPHAMIDE [Concomitant]
     Indication: BREAST CANCER
     Dosage: 50 MG, QD
     Route: 048
     Dates: start: 20070116, end: 20070318
  4. LUPRON [Concomitant]
     Indication: DRUG USE FOR UNKNOWN INDICATION
  5. RESTORIL [Concomitant]
     Indication: DRUG USE FOR UNKNOWN INDICATION
  6. EFFEXOR [Concomitant]
     Indication: DRUG USE FOR UNKNOWN INDICATION
  7. LEXAPRO [Concomitant]
     Indication: DRUG USE FOR UNKNOWN INDICATION
  8. METHOTREXATE [Concomitant]
     Indication: BREAST CANCER
     Dosage: 2.5 MG, BID
     Route: 048
     Dates: start: 20070116, end: 20070318

REACTIONS (1)
  - MEDICAL DEVICE COMPLICATION [None]
